FAERS Safety Report 16781232 (Version 1)
Quarter: 2019Q3

REPORT INFORMATION
  Report Type: Spontaneous
  Country: GR (occurrence: GR)
  Receive Date: 20190906
  Receipt Date: 20190906
  Transmission Date: 20191005
  Serious: Yes (Other)
  Sender: FDA-Public Use
  Company Number: GR-MYLANLABS-2019M1083294

PATIENT
  Age: 46 Year
  Sex: Female

DRUGS (3)
  1. ZOLEDRONIC ACID [Suspect]
     Active Substance: ZOLEDRONIC ACID
     Dosage: 22 INJECTIONS
     Dates: start: 201106, end: 201303
  2. EVEROLIMUS. [Suspect]
     Active Substance: EVEROLIMUS
     Indication: BREAST CANCER RECURRENT
     Dosage: UNK
     Dates: start: 201201, end: 201403
  3. EXEMESTANE. [Suspect]
     Active Substance: EXEMESTANE
     Indication: BREAST CANCER RECURRENT
     Dosage: UNK
     Dates: start: 201201, end: 201403

REACTIONS (2)
  - Osteonecrosis of jaw [Recovered/Resolved]
  - Periodontal disease [Recovering/Resolving]

NARRATIVE: CASE EVENT DATE: 20130131
